FAERS Safety Report 4553917-1 (Version None)
Quarter: 2005Q1

REPORT INFORMATION
  Report Type: 
  Country: None (occurrence: None)
  Receive Date: 20050118
  Receipt Date: 20040901
  Transmission Date: 20050727
  Serious: Yes (Death, Life-Threatening)
  Sender: FDA-Public Use
  Company Number: JP-MERCK-0409USA00146

PATIENT
  Age: 43 Year
  Sex: Male

DRUGS (14)
  1. FOSAMAX [Suspect]
     Indication: OSTEOPOROSIS
     Route: 048
     Dates: start: 20030324, end: 20030512
  2. THEO-DUR [Suspect]
     Indication: ASTHMA
     Route: 048
     Dates: end: 20030512
  3. ALFAROL [Concomitant]
     Indication: OSTEOPOROSIS
     Route: 048
     Dates: end: 20030512
  4. EUGLUCON [Concomitant]
     Indication: DIABETES MELLITUS NON-INSULIN-DEPENDENT
     Route: 048
     Dates: end: 20030512
  5. PENTAZOCINE HYDROCHLORIDE [Suspect]
     Indication: OSTEOPOROSIS
     Route: 048
     Dates: end: 20030512
  6. PREDNISOLONE [Suspect]
     Indication: ASTHMA
     Route: 048
     Dates: end: 20030512
  7. ONON [Concomitant]
     Indication: ASTHMA
     Route: 048
     Dates: end: 20030512
  8. GASTER [Concomitant]
     Indication: GASTRIC ULCER
     Route: 048
     Dates: end: 20030512
  9. SLOW-K [Concomitant]
     Indication: HYPOKALAEMIA
     Route: 048
     Dates: end: 20030512
  10. NORVASC [Concomitant]
     Indication: HYPERTENSION
     Route: 048
     Dates: end: 20030526
  11. MUCODYNE [Concomitant]
     Indication: ASTHMA
     Route: 048
     Dates: end: 20030512
  12. MAGNESIUM OXIDE [Concomitant]
     Indication: CONSTIPATION
     Route: 048
     Dates: end: 20030512
  13. CALCIUM LACTATE [Concomitant]
     Indication: OSTEOPOROSIS
     Route: 048
     Dates: end: 20030512
  14. HOKUNALIN [Concomitant]
     Indication: ASTHMA
     Route: 061
     Dates: end: 20030602

REACTIONS (3)
  - ANAEMIA [None]
  - GASTRIC ULCER HAEMORRHAGE [None]
  - PNEUMONIA [None]
